FAERS Safety Report 8345424 (Version 2)
Quarter: 2012Q4

REPORT INFORMATION
  Report Type: 
  Country: US (occurrence: US)
  Receive Date: 20120120
  Receipt Date: 20121019
  Transmission Date: 20130627
  Serious: Yes (Death, Hospitalization)
  Sender: FDA-Public Use
  Company Number: US-BRISTOL-MYERS SQUIBB COMPANY-16241291

PATIENT
  Age: 68 Year
  Sex: Male

DRUGS (12)
  1. YERVOY [Suspect]
     Indication: METASTATIC MALIGNANT MELANOMA
     Dates: start: 20110826, end: 20111018
  2. ISOSORBIDE MONONITRATE [Concomitant]
     Dosage: Isosorbide mononitrate ER tab
     Route: 048
     Dates: start: 20111006
  3. ACETAMINOPHEN [Concomitant]
     Dosage: tabs
     Dates: start: 20111006
  4. GLYBURIDE + METFORMIN HCL [Concomitant]
     Dosage: 1DF:5mg-500mg
     Route: 048
     Dates: start: 20111006
  5. LANTUS [Concomitant]
     Dosage: 1DF:100unit/ml
     Route: 058
     Dates: start: 20111006
  6. ASPIRIN [Concomitant]
     Dosage: 1DF:2 tab
81 mg effervescent tab
     Route: 048
     Dates: start: 20111006
  7. KLOR-CON [Concomitant]
     Dosage: packet
     Route: 048
     Dates: start: 20111006
  8. GLIPIZIDE [Concomitant]
     Dosage: Tabs
     Route: 048
     Dates: start: 20111006
  9. FUROSEMIDE [Concomitant]
     Dosage: Furosemide40mg tab
     Route: 048
     Dates: start: 20111006
  10. CARVEDILOL [Concomitant]
     Route: 048
     Dates: start: 20111014
  11. DEXAMETHASONE [Concomitant]
     Route: 048
     Dates: start: 20111018
  12. PREDNISONE [Concomitant]
     Route: 048

REACTIONS (2)
  - Intestinal perforation [Fatal]
  - Colitis [Unknown]
